FAERS Safety Report 12960753 (Version 1)
Quarter: 2016Q4

REPORT INFORMATION
  Report Type: Spontaneous
  Country: US (occurrence: US)
  Receive Date: 20161121
  Receipt Date: 20161121
  Transmission Date: 20170207
  Serious: No
  Sender: FDA-Public Use
  Company Number: US-OTSUKA-2016_017238

PATIENT
  Age: 67 Year
  Sex: Female

DRUGS (1)
  1. NUEDEXTA [Suspect]
     Active Substance: DEXTROMETHORPHAN HYDROBROMIDE\QUINIDINE SULFATE
     Indication: CEREBROVASCULAR ACCIDENT
     Dosage: 20 MG/10 MG , BID
     Route: 048
     Dates: start: 2014, end: 20160707

REACTIONS (7)
  - Inappropriate affect [Unknown]
  - Speech disorder [Unknown]
  - Inability to afford medication [Unknown]
  - Withdrawal syndrome [Unknown]
  - Affect lability [Not Recovered/Not Resolved]
  - Off label use [Unknown]
  - Incoherent [Unknown]

NARRATIVE: CASE EVENT DATE: 201607
